FAERS Safety Report 16172169 (Version 1)
Quarter: 2019Q2

REPORT INFORMATION
  Report Type: Spontaneous
  Country: US (occurrence: US)
  Receive Date: 20190409
  Receipt Date: 20190409
  Transmission Date: 20190711
  Serious: No
  Sender: FDA-Public Use
  Company Number: US-SHIRE-US201911418

PATIENT
  Sex: Male

DRUGS (1)
  1. INTUNIV [Suspect]
     Active Substance: GUANFACINE HYDROCHLORIDE
     Indication: ATTENTION DEFICIT/HYPERACTIVITY DISORDER
     Dosage: 1 MILLIGRAM
     Route: 065

REACTIONS (6)
  - Sedation [Unknown]
  - Bradyphrenia [Unknown]
  - Dizziness [Unknown]
  - Tardive dyskinesia [Unknown]
  - Irritability [Unknown]
  - Fatigue [Unknown]
